FAERS Safety Report 12538948 (Version 1)
Quarter: 2016Q3

REPORT INFORMATION
  Report Type: Spontaneous
  Country: US (occurrence: None)
  Receive Date: 20160707
  Receipt Date: 20160707
  Transmission Date: 20161109
  Serious: Yes (Death, Hospitalization)
  Sender: FDA-Public Use
  Company Number: None

PATIENT
  Age: 4 Year
  Sex: Male
  Weight: 20.9 kg

DRUGS (5)
  1. ONCASPAR [Suspect]
     Active Substance: PEGASPARGASE
     Dates: end: 20160614
  2. VINCRISTINE SULFATE. [Suspect]
     Active Substance: VINCRISTINE SULFATE
     Dates: end: 20160618
  3. CYTARABINE. [Suspect]
     Active Substance: CYTARABINE
     Dates: end: 20160610
  4. METHOTREXATE. [Suspect]
     Active Substance: METHOTREXATE
     Dates: end: 20160617
  5. DEXAMETHASONE. [Suspect]
     Active Substance: DEXAMETHASONE
     Dates: end: 20160629

REACTIONS (7)
  - Ischaemia [None]
  - Escherichia sepsis [None]
  - Dialysis [None]
  - Hypoxia [None]
  - Tonsillar disorder [None]
  - Septic shock [None]
  - Pupil fixed [None]

NARRATIVE: CASE EVENT DATE: 20160622
